FAERS Safety Report 24949673 (Version 1)
Quarter: 2025Q1

REPORT INFORMATION
  Report Type: Spontaneous
  Country: US (occurrence: None)
  Receive Date: 20250209
  Receipt Date: 20250209
  Transmission Date: 20250408
  Serious: Yes (Disabling)
  Sender: FDA-CTU
  Company Number: None

PATIENT
  Age: 33 Year
  Sex: Female
  Weight: 72 kg

DRUGS (1)
  1. ESCITALOPRAM [Suspect]
     Active Substance: ESCITALOPRAM OXALATE
     Indication: Generalised anxiety disorder

REACTIONS (6)
  - Fatigue [None]
  - Abnormal dreams [None]
  - Hypersomnia [None]
  - Impaired work ability [None]
  - Quality of life decreased [None]
  - Therapy cessation [None]

NARRATIVE: CASE EVENT DATE: 20230206
